FAERS Safety Report 6027997-0 (Version None)
Quarter: 2008Q4

REPORT INFORMATION
  Report Type: 
  Country: None (occurrence: None)
  Receive Date: 20081230
  Receipt Date: 20081215
  Transmission Date: 20090506
  Serious: No
  Sender: FDA-Public Use
  Company Number: B0550726A

PATIENT

DRUGS (3)
  1. LAMOTRIGINE [Suspect]
     Dosage: INTRAUTERINE
     Route: 015
  2. VALPROIC ACID [Suspect]
     Indication: EPILEPSY
     Dosage: INTRAUTERINE
     Route: 015
  3. FOLIC ACID [Concomitant]

REACTIONS (2)
  - AUTISM [None]
  - DRUG EXPOSURE DURING PREGNANCY [None]
